FAERS Safety Report 23227687 (Version 1)
Quarter: 2023Q4

REPORT INFORMATION
  Report Type: Spontaneous
  Country: GB (occurrence: GB)
  Receive Date: 20231124
  Receipt Date: 20231124
  Transmission Date: 20240110
  Serious: Yes (Life-Threatening)
  Sender: FDA-Public Use
  Company Number: None

PATIENT
  Age: 75 Year
  Sex: Male

DRUGS (2)
  1. UPADACITINIB [Suspect]
     Active Substance: UPADACITINIB
     Indication: Rheumatoid arthritis
     Dosage: 15MG DAILY
     Route: 048
     Dates: start: 20210601, end: 20230207
  2. TRULICITY [Concomitant]
     Active Substance: DULAGLUTIDE
     Indication: Adverse drug reaction

REACTIONS (1)
  - Rectal cancer [Recovering/Resolving]

NARRATIVE: CASE EVENT DATE: 20230202
